FAERS Safety Report 17744975 (Version 1)
Quarter: 2020Q2

REPORT INFORMATION
  Report Type: Report from Study
  Country: US (occurrence: US)
  Receive Date: 20200505
  Receipt Date: 20200505
  Transmission Date: 20200714
  Serious: Yes (Other)
  Sender: FDA-Public Use
  Company Number: NVSC2020US118909

PATIENT
  Sex: Female

DRUGS (1)
  1. GILENYA [Suspect]
     Active Substance: FINGOLIMOD HYDROCHLORIDE
     Indication: MULTIPLE SCLEROSIS
     Dosage: 0.5 MG, QD
     Route: 048
     Dates: start: 20191115

REACTIONS (5)
  - Hypertension [Unknown]
  - Psoriasis [Not Recovered/Not Resolved]
  - Tongue disorder [Recovering/Resolving]
  - Thermal burn [Recovering/Resolving]
  - Glossodynia [Recovering/Resolving]
